FAERS Safety Report 14274738 (Version 2)
Quarter: 2017Q4

REPORT INFORMATION
  Report Type: Spontaneous
  Country: JP (occurrence: JP)
  Receive Date: 20171212
  Receipt Date: 20171214
  Transmission Date: 20180321
  Serious: Yes (Death)
  Sender: FDA-Public Use
  Company Number: JP-JNJFOC-20171209970

PATIENT
  Sex: Female
  Weight: 47 kg

DRUGS (3)
  1. DARZALEX [Suspect]
     Active Substance: DARATUMUMAB
     Indication: PLASMA CELL MYELOMA
     Route: 041
     Dates: start: 20171128, end: 20171128
  2. DEXAMETHASONE. [Concomitant]
     Active Substance: DEXAMETHASONE
     Indication: PLASMA CELL MYELOMA
     Dates: start: 20171128, end: 20171129
  3. LENALIDOMIDE [Concomitant]
     Active Substance: LENALIDOMIDE
     Indication: PLASMA CELL MYELOMA
     Route: 048
     Dates: start: 20171128, end: 20171201

REACTIONS (1)
  - Disease progression [Fatal]
